FAERS Safety Report 8962145 (Version 1)
Quarter: 2012Q4

REPORT INFORMATION
  Report Type: 
  Country: US (occurrence: US)
  Receive Date: 20121212
  Receipt Date: 20121212
  Transmission Date: 20130627
  Serious: No
  Sender: FDA-Public Use
  Company Number: US-PFIZER INC-2012308299

PATIENT
  Age: 63 Year
  Sex: Male
  Weight: 186 kg

DRUGS (2)
  1. VIAGRA [Suspect]
     Indication: ERECTILE DYSFUNCTION
     Dosage: 100 mg, as needed
     Route: 048
     Dates: start: 2010
  2. FLOMAX [Concomitant]
     Dosage: UNK, 1x/day

REACTIONS (2)
  - Drug effect decreased [Unknown]
  - Incorrect dose administered [Unknown]
